FAERS Safety Report 25622090 (Version 4)
Quarter: 2025Q4

REPORT INFORMATION
  Report Type: Report from Study
  Country: EU (occurrence: EU)
  Receive Date: 20250730
  Receipt Date: 20251027
  Transmission Date: 20260118
  Serious: Yes (Other)
  Sender: AUROBINDO
  Company Number: EU-UCBSA-2025043017

PATIENT
  Age: 9 Year
  Sex: Female

DRUGS (9)
  1. VALPROATE SODIUM [Suspect]
     Active Substance: VALPROATE SODIUM
     Indication: Severe myoclonic epilepsy of infancy
     Dosage: UNK
     Route: 065
  2. TOPIRAMATE [Suspect]
     Active Substance: TOPIRAMATE
     Indication: Severe myoclonic epilepsy of infancy
     Dosage: UNK
     Route: 065
  3. ZONISAMIDE [Suspect]
     Active Substance: ZONISAMIDE
     Indication: Severe myoclonic epilepsy of infancy
     Dosage: UNK
     Route: 065
  4. FENFLURAMINE HYDROCHLORIDE [Suspect]
     Active Substance: FENFLURAMINE HYDROCHLORIDE
     Indication: Severe myoclonic epilepsy of infancy
     Dosage: UNK
     Route: 065
  5. CLOBAZAM [Suspect]
     Active Substance: CLOBAZAM
     Indication: Severe myoclonic epilepsy of infancy
     Dosage: UNK
     Route: 065
  6. CENOBAMATE [Suspect]
     Active Substance: CENOBAMATE
     Indication: Severe myoclonic epilepsy of infancy
     Dosage: 12.5 MILLIGRAM/KILOGRAM (INITIAL DOSE)
     Route: 065
  7. CENOBAMATE [Suspect]
     Active Substance: CENOBAMATE
     Dosage: 100 MILLIGRAM/KILOGRAM (FINAL DOSE)
     Route: 065
  8. PERAMPANEL [Suspect]
     Active Substance: PERAMPANEL
     Indication: Severe myoclonic epilepsy of infancy
     Dosage: UNK
     Route: 065
  9. STIRIPENTOL [Suspect]
     Active Substance: STIRIPENTOL
     Indication: Severe myoclonic epilepsy of infancy
     Dosage: UNK
     Route: 065

REACTIONS (3)
  - Seizure [Recovering/Resolving]
  - Drug ineffective [Unknown]
  - Multiple-drug resistance [Unknown]
